FAERS Safety Report 15412827 (Version 3)
Quarter: 2020Q2

REPORT INFORMATION
  Report Type: Not Available
  Country: US (occurrence: US)
  Receive Date: 20180921
  Receipt Date: 20200612
  Transmission Date: 20200713
  Serious: Yes (Hospitalization, Other)
  Sender: FDA-Public Use
  Company Number: US-NEUROCRINE BIOSCIENCES INC.-2018NBI02796

PATIENT
  Age: 57 Year
  Sex: Male

DRUGS (11)
  1. DEPAKOTE [Concomitant]
     Active Substance: DIVALPROEX SODIUM
  2. TRAZODONE [Concomitant]
     Active Substance: TRAZODONE HYDROCHLORIDE
  3. LEXAPRO [Concomitant]
     Active Substance: ESCITALOPRAM OXALATE
  4. SEROQUEL [Concomitant]
     Active Substance: QUETIAPINE FUMARATE
  5. AMBIEN [Concomitant]
     Active Substance: ZOLPIDEM TARTRATE
  6. DILTIAZEM CD [Concomitant]
     Active Substance: DILTIAZEM
  7. COGENTIN [Concomitant]
     Active Substance: BENZTROPINE MESYLATE
  8. NEURONTIN [Concomitant]
     Active Substance: GABAPENTIN
  9. INGREZZA [Suspect]
     Active Substance: VALBENAZINE
     Indication: TARDIVE DYSKINESIA
     Route: 048
     Dates: start: 20170614, end: 20170620
  10. INGREZZA [Suspect]
     Active Substance: VALBENAZINE
     Route: 048
     Dates: start: 20170621
  11. METFORMIN HYDROCHLORIDE ER [Concomitant]
     Active Substance: METFORMIN HYDROCHLORIDE

REACTIONS (6)
  - Myocardial infarction [Unknown]
  - Foot fracture [Unknown]
  - Fall [Unknown]
  - Tremor [Not Recovered/Not Resolved]
  - Osteomyelitis [Unknown]
  - Dizziness [Unknown]

NARRATIVE: CASE EVENT DATE: 2017
